FAERS Safety Report 4823169-3 (Version None)
Quarter: 2005Q4

REPORT INFORMATION
  Report Type: 
  Country: None (occurrence: None)
  Receive Date: 20051027
  Receipt Date: 20050426
  Transmission Date: 20060501
  Serious: Yes (Life-Threatening, Hospitalization)
  Sender: FDA-Public Use
  Company Number: HQWYE459029APR05

PATIENT
  Sex: Female

DRUGS (3)
  1. PREMARIN [Suspect]
     Indication: HORMONE REPLACEMENT THERAPY
     Dosage: 2.5 MG 1X PER 1 DAY,
     Dates: start: 19850101, end: 20040928
  2. EFFEXOR [Suspect]
     Dosage: 37.5 MG 1X PER 1 DAY, ORAL
     Route: 048
     Dates: start: 20010101
  3. ZETIA [Suspect]
     Dosage: ORAL
     Route: 048
     Dates: start: 20020101

REACTIONS (1)
  - PULMONARY EMBOLISM [None]
